FAERS Safety Report 9442626 (Version 1)
Quarter: 2013Q3

REPORT INFORMATION
  Report Type: Report from Study
  Country: JP (occurrence: JP)
  Receive Date: 20130806
  Receipt Date: 20130806
  Transmission Date: 20140515
  Serious: Yes (Death)
  Sender: FDA-Public Use
  Company Number: JP-SHIRE-SPV1-2009-01462

PATIENT
  Age: 28 Year
  Sex: Male
  Weight: 21 kg

DRUGS (8)
  1. IDURSULFASE [Suspect]
     Indication: MUCOPOLYSACCHARIDOSIS II
     Dosage: 0.5 MG/KG, 1X/WEEK
     Route: 041
     Dates: start: 20080709
  2. LYSOZYME HYDROCHLORIDE [Concomitant]
     Indication: ASTHMA
     Dosage: 40 G, 2X/DAY:BID
     Route: 065
  3. TULOBUTEROL [Concomitant]
     Indication: ASTHMA
     Dosage: 1 MG, 1X/DAY:QD
     Route: 065
  4. DIMETHICONE                        /00159501/ [Concomitant]
     Indication: FLATULENCE
     Dosage: 40 MG, 3X/DAY:TID
     Route: 065
  5. SODIUM CHLORIDE [Concomitant]
     Indication: HYPONATRAEMIA
     Dosage: 1 G, 3X/DAY:TID
     Route: 065
  6. SODIUM PICOSULFATE [Concomitant]
     Indication: CONSTIPATION
     Dosage: UNK UNK, UNKNOWN
     Route: 065
  7. FUROSEMIDE [Concomitant]
     Indication: OEDEMA
     Dosage: 20 MG, 1X/DAY:QD
     Route: 065
  8. CHLORPHENIRAMINE MALEATE [Concomitant]
     Indication: PREMEDICATION
     Dosage: 6 MG, UNKNOWN
     Route: 065

REACTIONS (2)
  - Cardiac failure [Fatal]
  - Cardiac arrest [Fatal]
